FAERS Safety Report 21162143 (Version 3)
Quarter: 2022Q3

REPORT INFORMATION
  Report Type: Spontaneous
  Country: CZ (occurrence: CZ)
  Receive Date: 20220802
  Receipt Date: 20220909
  Transmission Date: 20221027
  Serious: Yes (Death, Other)
  Sender: FDA-Public Use
  Company Number: CZ-SA-SAC20220511001120

PATIENT
  Age: 72 Year
  Sex: Female

DRUGS (38)
  1. TIAPRIDE HYDROCHLORIDE [Suspect]
     Active Substance: TIAPRIDE HYDROCHLORIDE
     Dosage: UNK
  2. CARBAMAZEPINE [Suspect]
     Active Substance: CARBAMAZEPINE
     Dosage: UNK
  3. CHOLECALCIFEROL [Suspect]
     Active Substance: CHOLECALCIFEROL
     Dosage: UNK
  4. AMOXICILLIN [Suspect]
     Active Substance: AMOXICILLIN
     Dosage: UNK UNK, UNKNOWN FREQ.
  5. ENOXAPARIN SODIUM [Suspect]
     Active Substance: ENOXAPARIN SODIUM
     Dosage: UNK
  6. CAPTOPRIL [Suspect]
     Active Substance: CAPTOPRIL
  7. AMOXICILLIN SODIUM [Suspect]
     Active Substance: AMOXICILLIN SODIUM
  8. NITROFURANTOIN [Suspect]
     Active Substance: NITROFURANTOIN
     Dosage: UNK
  9. CORDARONE [Concomitant]
     Active Substance: AMIODARONE HYDROCHLORIDE
     Indication: Product used for unknown indication
     Dosage: 200 MG, ONCE DAILY (1-0-0, MONDAY- FRIDAY)
  10. ELIQUIS [Concomitant]
     Active Substance: APIXABAN
     Dosage: UNK
  11. XARELTO [Concomitant]
     Active Substance: RIVAROXABAN
     Indication: Product used for unknown indication
     Dosage: 20 MG, ONCE DAILY (AFTER MEAL)
  12. RILMENIDINE [Concomitant]
     Active Substance: RILMENIDINE
     Indication: Product used for unknown indication
     Dosage: 1 MG, BID
  13. TRAMADOL [Concomitant]
     Active Substance: TRAMADOL
     Indication: Product used for unknown indication
     Dosage: 200 MG, TWICE DAILY (1-0-1 )
  14. ALLOPURINOL [Concomitant]
     Active Substance: ALLOPURINOL
     Indication: Product used for unknown indication
     Dosage: 300 MG, ONCE DAILY (0-1-0), (AFTER MEAL)
  15. DIOSMIN\HESPERIDIN [Concomitant]
     Active Substance: DIOSMIN\HESPERIDIN
     Indication: Product used for unknown indication
     Dosage: 500 MG, TWICE DAILY (1-0-1)
  16. SINGULAIR [Concomitant]
     Active Substance: MONTELUKAST SODIUM
     Indication: Product used for unknown indication
     Dosage: 10 MG, ONCE DAILY (1-0-0)
  17. SOL [Concomitant]
     Indication: Product used for unknown indication
     Dosage: 225MG
  18. IBUPROFEN [Concomitant]
     Active Substance: IBUPROFEN
     Indication: Product used for unknown indication
     Dosage: UNK UNK, AS NEEDED
  19. METOCLOPRAMIDE HYDROCHLORIDE [Concomitant]
     Active Substance: METOCLOPRAMIDE HYDROCHLORIDE
     Indication: Product used for unknown indication
     Dosage: UNK UNK, AS NEEDED
  20. RAMIPRIL [Concomitant]
     Active Substance: RAMIPRIL
     Indication: Product used for unknown indication
     Dosage: 10 MG, 1/2-0-1, EVENING DOSE BEFORE SLEEPING
  21. AMLODIPINE BESYLATE [Concomitant]
     Active Substance: AMLODIPINE BESYLATE
     Indication: Product used for unknown indication
     Dosage: 5 MG, QD
  22. AMLODIPINE BESYLATE [Concomitant]
     Active Substance: AMLODIPINE BESYLATE
     Dosage: 5 MG, ONCE DAILY (0-0-1, NEWLY)
  23. OMEPRAZOLE [Concomitant]
     Active Substance: OMEPRAZOLE
     Dosage: 20 MG, QD
  24. ATROVENT [Concomitant]
     Active Substance: IPRATROPIUM BROMIDE
     Indication: Bronchitis
     Dosage: 0.25 MG/ML, THRICE DAILY, 3X2 (BREATHS)
  25. INDAPAMIDE [Concomitant]
     Active Substance: INDAPAMIDE
     Indication: Hypertension
     Dosage: 2.5 MG, QD
  26. INDAPAMIDE [Concomitant]
     Active Substance: INDAPAMIDE
     Indication: Oedema
  27. GLUCOPHAGE [Concomitant]
     Active Substance: METFORMIN HYDROCHLORIDE
     Indication: Type 2 diabetes mellitus
     Dosage: 1000 MG, QD
  28. GLUCOPHAGE [Concomitant]
     Active Substance: METFORMIN HYDROCHLORIDE
     Indication: Product used for unknown indication
     Dosage: 1000 MG, TWICE DAILY (1-0-1)
  29. ALLERGOCROM [Concomitant]
     Indication: Product used for unknown indication
     Dosage: 20 MG/ML, TWICE DAILY, 2X1 (SPRAY)
  30. NOVALGIN (METAMIZOLE SODIUM) [Concomitant]
     Active Substance: METAMIZOLE SODIUM
     Indication: Product used for unknown indication
     Dosage: UNK UNK, AS NEEDED
  31. LENTOCILIN [Concomitant]
     Indication: Product used for unknown indication
     Dosage: 2.4 MIU, MONTHLY
  32. NEUROLAL [Concomitant]
     Indication: Product used for unknown indication
     Dosage: 0.25 MG, TWICE DAILY (1-0-1)
  33. ATORVASTATIN [Concomitant]
     Active Substance: ATORVASTATIN
     Indication: Product used for unknown indication
     Dosage: 20 MG, ONCE DAILY (0-0-1)
  34. ERDOSTEINE [Concomitant]
     Active Substance: ERDOSTEINE
     Indication: Nasal congestion
     Dosage: 225 MG, TWICE DAILY (1-1-0) (AT GREATER CONGESTION)
  35. PANGROL [PANCREATIN] [Concomitant]
     Indication: Product used for unknown indication
     Dosage: UNK UNK, PRN
  36. CETIRIZINE HYDROCHLORIDE [Concomitant]
     Active Substance: CETIRIZINE HYDROCHLORIDE
     Indication: Product used for unknown indication
     Dosage: 10 MG, ONCE DAILY (1-0-0)
  37. OMEPRAZOLE [Concomitant]
     Active Substance: OMEPRAZOLE
     Indication: Product used for unknown indication
     Dosage: 20 MG, ONCE DAILY (1-0-0) (1 HOUR BEFORE MEAL)
  38. ALLOPURINOL [Concomitant]
     Active Substance: ALLOPURINOL

REACTIONS (10)
  - Left ventricular dysfunction [Unknown]
  - Restlessness [Unknown]
  - Pruritus [Unknown]
  - Swelling [Unknown]
  - Bronchitis [Unknown]
  - Oedema [Unknown]
  - Spinal pain [Unknown]
  - Rash [Unknown]
  - Arthritis [Unknown]
  - Sudden death [Fatal]

NARRATIVE: CASE EVENT DATE: 20211001
